FAERS Safety Report 6470904-7 (Version None)
Quarter: 2009Q4

REPORT INFORMATION
  Report Type: 
  Country: None (occurrence: None)
  Receive Date: 20091203
  Receipt Date: 20080121
  Transmission Date: 20100525
  Serious: Yes (Hospitalization, Other)
  Sender: FDA-Public Use
  Company Number: US-ELI_LILLY_AND_COMPANY-US200801002515

PATIENT
  Sex: Female
  Weight: 83 kg

DRUGS (32)
  1. CYMBALTA [Suspect]
     Indication: DEPRESSION
     Dosage: 60 MG, DAILY (1/D)
     Route: 048
     Dates: start: 20060501
  2. CYMBALTA [Suspect]
     Dosage: 60 MG, 2/D
  3. LORAZEPAM [Concomitant]
  4. CYANOCOBALAMIN [Concomitant]
  5. ASPIRIN [Concomitant]
  6. INSULIN [Concomitant]
  7. INSULIN GLARGINE [Concomitant]
  8. LIDOCAINE [Concomitant]
     Route: 062
  9. CLONAZEPAM [Concomitant]
  10. ALBUTEROL SULFATE AUTOHALER [Concomitant]
  11. ZOLPIDEM TARTRATE [Concomitant]
  12. SIMVASTATIN [Concomitant]
  13. SENNA [Concomitant]
  14. DICLOFENAC SODIUM [Concomitant]
  15. METFORMIN HCL [Concomitant]
  16. LEVOTHYROXINE SODIUM [Concomitant]
  17. HYDROCODONE [Concomitant]
  18. FUROSEMIDE [Concomitant]
  19. FOLIC ACID [Concomitant]
  20. FLUTICASONE W/SALMETEROL [Concomitant]
  21. FERROUS SULFATE TAB [Concomitant]
  22. NEXIUM [Concomitant]
  23. CYCLOBENZAPRINE [Concomitant]
  24. CLOPIDOGREL [Concomitant]
  25. CALCIUM WITH VITAMIN D [Concomitant]
  26. CALCITONIN [Concomitant]
  27. BUDESONIDE [Concomitant]
  28. ACETAMINOPHEN [Concomitant]
  29. SIMETHICONE [Concomitant]
  30. MAALOX [Concomitant]
  31. MILK OF MAGNESIA TAB [Concomitant]
  32. LATANOPROST [Concomitant]

REACTIONS (2)
  - BLOOD GLUCOSE DECREASED [None]
  - SEROTONIN SYNDROME [None]
